FAERS Safety Report 15097013 (Version 3)
Quarter: 2018Q3

REPORT INFORMATION
  Report Type: Spontaneous
  Country: US (occurrence: US)
  Receive Date: 20180702
  Receipt Date: 20180718
  Transmission Date: 20181010
  Serious: No
  Sender: FDA-Public Use
  Company Number: US-GLAXOSMITHKLINE-US2018111396

PATIENT
  Age: 72 Year
  Sex: Male

DRUGS (2)
  1. BREO ELLIPTA [Suspect]
     Active Substance: FLUTICASONE FUROATE\VILANTEROL TRIFENATATE
     Indication: EMPHYSEMA
     Dosage: 1 PUFF(S), QD
     Route: 055
     Dates: end: 20180621
  2. OMEPRAZOLE. [Concomitant]
     Active Substance: OMEPRAZOLE

REACTIONS (10)
  - Wrong technique in product usage process [Unknown]
  - Glossodynia [Unknown]
  - Paraesthesia oral [Recovering/Resolving]
  - Ageusia [Not Recovered/Not Resolved]
  - Tongue haemorrhage [Unknown]
  - Tongue eruption [Recovering/Resolving]
  - Dysgeusia [Recovered/Resolved]
  - Tongue disorder [Unknown]
  - Tongue erythema [Recovering/Resolving]
  - Glossitis [Unknown]

NARRATIVE: CASE EVENT DATE: 20180621
